FAERS Safety Report 8980510 (Version 1)
Quarter: 2012Q4

REPORT INFORMATION
  Report Type: 
  Country: US (occurrence: US)
  Receive Date: 20121221
  Receipt Date: 20121221
  Transmission Date: 20130627
  Serious: No
  Sender: FDA-Public Use
  Company Number: US-TEVA-374533USA

PATIENT
  Sex: Female
  Weight: 49.49 kg

DRUGS (12)
  1. PROAIR HFA [Suspect]
     Indication: WHEEZING
     Dosage: 1-2 puffs Q3-4H PRN
     Route: 055
     Dates: start: 201211
  2. FENTANYL TRANSDERMAL PATCH [Concomitant]
     Indication: PAIN
     Dosage: 2XW
     Route: 062
  3. NORCO [Concomitant]
     Indication: PAIN
     Dosage: 2 tablets 5 x day
     Route: 048
  4. NORCO [Concomitant]
  5. OXYCONTIN [Concomitant]
     Indication: PAIN
     Dosage: BID
     Route: 048
  6. LYRICA [Concomitant]
     Indication: FIBROMYALGIA
     Dosage: TID
     Route: 048
  7. LYRICA [Concomitant]
     Indication: CONVULSION
  8. GABAPENTIN [Concomitant]
     Indication: CONVULSION
     Dosage: QID
     Route: 048
  9. OMEPRAZOLE [Concomitant]
     Indication: ABDOMINAL DISCOMFORT
     Dosage: QD
     Route: 048
  10. FLUOXETINE [Concomitant]
     Indication: DEPRESSION
     Dosage: QD
     Route: 048
  11. PHENYTOIN [Concomitant]
     Indication: CONVULSION
     Dosage: BID
     Route: 048
     Dates: start: 20121101
  12. METHOCARBAMOL [Concomitant]
     Indication: MUSCLE RELAXANT THERAPY
     Dosage: BID PRN
     Route: 048

REACTIONS (2)
  - Burning sensation [Not Recovered/Not Resolved]
  - Oral mucosal blistering [Not Recovered/Not Resolved]
